FAERS Safety Report 12964733 (Version 1)
Quarter: 2016Q4

REPORT INFORMATION
  Report Type: Spontaneous
  Country: CA (occurrence: CA)
  Receive Date: 20161122
  Receipt Date: 20161122
  Transmission Date: 20170207
  Serious: Yes (Death, Hospitalization)
  Sender: FDA-Public Use
  Company Number: CA-INGENUS PHARMACEUTICALS NJ, LLC-ING201611-000110

PATIENT
  Age: 4 Year
  Sex: Male
  Weight: 27.6 kg

DRUGS (1)
  1. CARISOPRODOL, ASPIRIN 90% AND CODEINE PHOSPHATE [Suspect]
     Active Substance: ASPIRIN\CARISOPRODOL\CODEINE PHOSPHATE

REACTIONS (3)
  - Toxicity to various agents [Fatal]
  - Pneumonia [Fatal]
  - Respiratory arrest [Fatal]
